FAERS Safety Report 16074025 (Version 2)
Quarter: 2019Q2

REPORT INFORMATION
  Report Type: Spontaneous
  Country: US (occurrence: US)
  Receive Date: 20190314
  Receipt Date: 20190516
  Transmission Date: 20190711
  Serious: No
  Sender: FDA-Public Use
  Company Number: US-BAYER-2019-049824

PATIENT
  Sex: Female

DRUGS (2)
  1. MIRALAX [Suspect]
     Active Substance: POLYETHYLENE GLYCOL 3350
     Dosage: TASTED A SMALL AMOUNT
     Route: 048
     Dates: start: 20190310
  2. MIRALAX [Suspect]
     Active Substance: POLYETHYLENE GLYCOL 3350
     Dosage: TASTED A SMALL AMOUNT
     Route: 048
     Dates: start: 20181120

REACTIONS (5)
  - Product taste abnormal [None]
  - Product taste abnormal [Unknown]
  - Product taste abnormal [Unknown]
  - Poor quality product administered [None]
  - Incorrect dose administered [Unknown]

NARRATIVE: CASE EVENT DATE: 20181120
